FAERS Safety Report 6282763-6 (Version None)
Quarter: 2009Q3

REPORT INFORMATION
  Report Type: 
  Country: None (occurrence: None)
  Receive Date: 20090724
  Receipt Date: 20071004
  Transmission Date: 20100115
  Serious: Yes (Other)
  Sender: FDA-Public Use
  Company Number: US-ASTRAZENECA-2006UW22913

PATIENT
  Age: 10463 Day
  Sex: Male
  Weight: 158.8 kg

DRUGS (7)
  1. SEROQUEL [Suspect]
     Indication: DEPRESSION
     Dosage: 25-100 MG AT NIGHT
     Route: 048
     Dates: start: 20040910, end: 20051122
  2. SEROQUEL [Suspect]
     Route: 048
     Dates: start: 20041001, end: 20051101
  3. CYMBALTA [Concomitant]
     Dates: start: 20040101
  4. VYTORIN [Concomitant]
     Dates: start: 20040101
  5. KLONOPIN [Concomitant]
     Route: 048
     Dates: start: 20040910
  6. ATENOLOL [Concomitant]
     Dosage: 25-100 MG DAILY
     Route: 048
     Dates: start: 20040910
  7. DIOVAN HCT [Concomitant]
     Dosage: 320/25 MG DAILY
     Route: 048
     Dates: start: 20030916

REACTIONS (3)
  - DIABETES MELLITUS [None]
  - NEUROPATHY PERIPHERAL [None]
  - TYPE 2 DIABETES MELLITUS [None]
